FAERS Safety Report 16930850 (Version 1)
Quarter: 2019Q4

REPORT INFORMATION
  Report Type: Report from Study
  Country: US (occurrence: US)
  Receive Date: 20191017
  Receipt Date: 20191017
  Transmission Date: 20200122
  Serious: Yes (Hospitalization)
  Sender: FDA-Public Use
  Company Number: US-ACTELION-A-NJ2019-196904

PATIENT
  Sex: Female

DRUGS (9)
  1. CALCIUM + D3 [Concomitant]
     Active Substance: CALCIUM\CHOLECALCIFEROL
     Dosage: 1 TAB, QD
     Route: 048
  2. CLARITIN-D NOS [Concomitant]
     Active Substance: LORATADINE\PSEUDOEPHEDRINE SULFATE
     Dosage: 1 TAB, BID
     Route: 048
  3. ZAVESCA [Suspect]
     Active Substance: MIGLUSTAT
     Indication: FABRY^S DISEASE
     Dosage: 200 MG, BID
     Route: 048
     Dates: start: 20190820
  4. OXCARBAZEPINE. [Concomitant]
     Active Substance: OXCARBAZEPINE
     Dosage: 150 MG, QD
     Route: 048
  5. ONDANSETRON [Concomitant]
     Active Substance: ONDANSETRON
     Dosage: 4 MG, PRN
     Route: 048
  6. VITAMIN K [Concomitant]
     Active Substance: PHYTONADIONE
     Dosage: 100 MCG, BID
     Route: 048
  7. BANZEL [Concomitant]
     Active Substance: RUFINAMIDE
     Dosage: 600 MG, QD
     Route: 048
  8. ATIVAN [Concomitant]
     Active Substance: LORAZEPAM
     Dosage: 1 MG, PRN
     Route: 048
  9. AZITHROMYCIN ANHYDROUS. [Concomitant]
     Active Substance: AZITHROMYCIN ANHYDROUS
     Dosage: 125 MG, PRN
     Route: 048

REACTIONS (2)
  - Anaesthetic complication [Unknown]
  - Gastrointestinal tube insertion [Unknown]
